FAERS Safety Report 6824832-5 (Version None)
Quarter: 2010Q3

REPORT INFORMATION
  Report Type: 
  Country: None (occurrence: None)
  Receive Date: 20100708
  Receipt Date: 20061125
  Transmission Date: 20110219
  Serious: No
  Sender: FDA-Public Use
  Company Number: US-PFIZER INC-2006148065

PATIENT
  Age: 59 Year
  Sex: Female
  Weight: 62.6 kg

DRUGS (4)
  1. CHANTIX [Suspect]
     Indication: SMOKING CESSATION THERAPY
     Dates: start: 20061001
  2. ALL OTHER THERAPEUTIC PRODUCTS [Concomitant]
  3. ATIVAN [Concomitant]
  4. DARVOCET [Concomitant]

REACTIONS (4)
  - CONSTIPATION [None]
  - NAUSEA [None]
  - VOMITING [None]
  - VOMITING PROJECTILE [None]
